FAERS Safety Report 7217387-7 (Version None)
Quarter: 2010Q4

REPORT INFORMATION
  Report Type: 
  Country: None (occurrence: None)
  Receive Date: 20101230
  Receipt Date: 20100914
  Transmission Date: 20110411
  Serious: Yes (Hospitalization)
  Sender: FDA-Public Use
  Company Number: 2010-00795

PATIENT
  Age: 65 Year
  Sex: Male
  Weight: 94.8018 kg

DRUGS (7)
  1. ZICAM COLD REMEDY RAPIDMELTS [Suspect]
     Indication: NASOPHARYNGITIS
     Dosage: QD X 2 DAYS
     Dates: start: 20060904, end: 20060905
  2. DIOVAN [Concomitant]
  3. TOPROL-XL [Concomitant]
  4. ALLEGRA [Concomitant]
  5. DIOVAN [Concomitant]
  6. TRIAMTERENE AND HYDROCHLOROTHIAZIDE [Concomitant]
  7. BENADRYL [Concomitant]

REACTIONS (6)
  - ALCOHOL ABUSE [None]
  - BLOOD PRESSURE INCREASED [None]
  - CEREBROVASCULAR ACCIDENT [None]
  - HYPOKALAEMIA [None]
  - HYPONATRAEMIA [None]
  - LIVER FUNCTION TEST ABNORMAL [None]
